FAERS Safety Report 4432456-2 (Version None)
Quarter: 2004Q3

REPORT INFORMATION
  Report Type: 
  Country: None (occurrence: None)
  Receive Date: 20040820
  Receipt Date: 20040816
  Transmission Date: 20050211
  Serious: Yes (Other)
  Sender: FDA-Public Use
  Company Number: S04-USA-04981-01

PATIENT
  Age: 87 Year
  Sex: Female

DRUGS (6)
  1. LEXAPRO [Suspect]
     Indication: DEPRESSION
     Dosage: 10 MG QD PO
     Route: 048
     Dates: start: 20040810, end: 20040816
  2. MORPHINE [Concomitant]
  3. FENTANYL [Concomitant]
  4. TOPROL-XL [Concomitant]
  5. ZANTAC [Concomitant]
  6. RAMIPRIL [Concomitant]

REACTIONS (1)
  - INAPPROPRIATE ANTIDIURETIC HORMONE SECRETION [None]
